FAERS Safety Report 19413754 (Version 3)
Quarter: 2021Q3

REPORT INFORMATION
  Report Type: Spontaneous
  Country: US (occurrence: US)
  Receive Date: 20210615
  Receipt Date: 20210827
  Transmission Date: 20211014
  Serious: No
  Sender: FDA-Public Use
  Company Number: US-STRONGBRIDGE BIOPHARMA-2021-STR-000157

PATIENT
  Sex: Male

DRUGS (3)
  1. KEVEYIS [Suspect]
     Active Substance: DICHLORPHENAMIDE
     Dosage: 50 MG, BID
     Route: 048
  2. KEVEYIS [Suspect]
     Active Substance: DICHLORPHENAMIDE
     Dosage: 50 MG, BID
     Route: 048
  3. KEVEYIS [Suspect]
     Active Substance: DICHLORPHENAMIDE
     Indication: FAMILIAL PERIODIC PARALYSIS
     Dosage: 50 MG, BID
     Route: 048
     Dates: start: 20180416

REACTIONS (11)
  - Illness [Unknown]
  - Weight decreased [Recovering/Resolving]
  - Blood test abnormal [Unknown]
  - Asthenia [Unknown]
  - Intentional underdose [Unknown]
  - COVID-19 [Unknown]
  - Condition aggravated [Unknown]
  - Fatigue [Unknown]
  - Weight gain poor [Unknown]
  - Malaise [Unknown]
  - Diarrhoea [Recovering/Resolving]
